FAERS Safety Report 9454874 (Version 2)
Quarter: 2013Q4

REPORT INFORMATION
  Report Type: Spontaneous
  Country: GB (occurrence: GB)
  Receive Date: 20130813
  Receipt Date: 20131122
  Transmission Date: 20140711
  Serious: Yes (Hospitalization)
  Sender: FDA-Public Use
  Company Number: GB-ROCHE-1260259

PATIENT
  Age: 56 Year
  Sex: Male

DRUGS (3)
  1. XENICAL [Suspect]
     Indication: WEIGHT DECREASED
     Route: 048
     Dates: start: 201306, end: 201307
  2. GAVISCON TABLETS (UNITED KINGDOM) [Concomitant]
  3. LANSOPRAZOLE [Concomitant]

REACTIONS (4)
  - Abdominal pain upper [Recovered/Resolved]
  - Localised intraabdominal fluid collection [Recovered/Resolved]
  - Mesenteric vein thrombosis [Recovered/Resolved]
  - Portal vein thrombosis [Recovered/Resolved]
